FAERS Safety Report 4866380-8 (Version None)
Quarter: 2005Q4

REPORT INFORMATION
  Report Type: 
  Country: None (occurrence: None)
  Receive Date: 20051227
  Receipt Date: 20050414
  Transmission Date: 20060501
  Serious: Yes (Hospitalization, Other)
  Sender: FDA-Public Use
  Company Number: US-MERCK-0504USA03134

PATIENT
  Age: 34 Year
  Sex: Female

DRUGS (1)
  1. VIOXX [Suspect]
     Route: 048
     Dates: start: 19990201, end: 20010101

REACTIONS (18)
  - CEREBROVASCULAR ACCIDENT [None]
  - CHOLECYSTITIS [None]
  - CONNECTIVE TISSUE DISORDER [None]
  - DECREASED APPETITE [None]
  - DRUG ABUSER [None]
  - DRUG TOXICITY [None]
  - FACTOR II DEFICIENCY [None]
  - GAIT DISTURBANCE [None]
  - GRAND MAL CONVULSION [None]
  - HEADACHE [None]
  - HELICOBACTER PYLORI IDENTIFICATION TEST POSITIVE [None]
  - IMMUNOSUPPRESSION [None]
  - MENSTRUATION IRREGULAR [None]
  - MULTIPLE MYELOMA [None]
  - PEPTIC ULCER [None]
  - SOMNOLENCE [None]
  - SYSTEMIC LUPUS ERYTHEMATOSUS [None]
  - WEIGHT LOSS DIET [None]
